FAERS Safety Report 19403469 (Version 1)
Quarter: 2021Q2

REPORT INFORMATION
  Report Type: Other
  Country: US (occurrence: US)
  Receive Date: 20210611
  Receipt Date: 20210611
  Transmission Date: 20210717
  Serious: No
  Sender: FDA-Public Use
  Company Number: US-NEUROCRINE BIOSCIENCES INC.-2021NBI02752

PATIENT

DRUGS (5)
  1. INGREZZA [Suspect]
     Active Substance: VALBENAZINE
     Dosage: 80 MILLIGRAM, QD
     Route: 048
     Dates: start: 20210525
  2. RISPERDAL [Concomitant]
     Active Substance: RISPERIDONE
     Dosage: 2 MILLIGRAM AT BEDTIME
     Route: 048
  3. CLONAZEPAM. [Concomitant]
     Active Substance: CLONAZEPAM
     Dosage: 0.5 MILLIGRAM AT BEDTIME
     Route: 048
  4. PAROXETINE. [Concomitant]
     Active Substance: PAROXETINE
     Dosage: 40 MILLIGRAM, QD
     Route: 048
  5. INGREZZA [Suspect]
     Active Substance: VALBENAZINE
     Indication: TARDIVE DYSKINESIA
     Dosage: 40 MILLIGRAM
     Route: 048

REACTIONS (4)
  - Muscle fatigue [Unknown]
  - Loss of personal independence in daily activities [Unknown]
  - Tardive dyskinesia [Not Recovered/Not Resolved]
  - Myalgia [Unknown]
